FAERS Safety Report 26192132 (Version 1)
Quarter: 2025Q4

REPORT INFORMATION
  Report Type: Spontaneous
  Country: EU (occurrence: EU)
  Receive Date: 20251223
  Receipt Date: 20251223
  Transmission Date: 20260117
  Serious: Yes (Hospitalization)
  Sender: PFIZER
  Company Number: EU-PFIZER INC-202500246330

PATIENT
  Age: 81 Year
  Sex: Male

DRUGS (3)
  1. VYNDAQEL [Suspect]
     Active Substance: TAFAMIDIS MEGLUMINE
     Dosage: UNK
  2. SPIRONOLACTONE [Concomitant]
     Active Substance: SPIRONOLACTONE
  3. FUROSEMIDE [Concomitant]
     Active Substance: FUROSEMIDE

REACTIONS (3)
  - Fall [Unknown]
  - Dyspnoea [Unknown]
  - Fluid retention [Unknown]

NARRATIVE: CASE EVENT DATE: 20250101
